FAERS Safety Report 13728521 (Version 1)
Quarter: 2017Q3

REPORT INFORMATION
  Report Type: Spontaneous
  Country: US (occurrence: US)
  Receive Date: 20170706
  Receipt Date: 20170706
  Transmission Date: 20171127
  Serious: Yes (Hospitalization)
  Sender: FDA-Public Use
  Company Number: None

PATIENT
  Age: 56 Year
  Sex: Male

DRUGS (7)
  1. XIFAXAN [Concomitant]
     Active Substance: RIFAXIMIN
  2. NOVOLOG [Concomitant]
     Active Substance: INSULIN ASPART
  3. BRILINTA [Concomitant]
     Active Substance: TICAGRELOR
  4. LANTUS [Concomitant]
     Active Substance: INSULIN GLARGINE
  5. STELARA [Suspect]
     Active Substance: USTEKINUMAB
     Indication: PSORIASIS
     Dosage: 45MG/ML Q12WKS UNDER THE SKIN
     Route: 058
     Dates: start: 20170321
  6. LISINOPRIL. [Concomitant]
     Active Substance: LISINOPRIL
  7. ATORVASTATIN [Concomitant]
     Active Substance: ATORVASTATIN

REACTIONS (2)
  - Drug effect decreased [None]
  - Stent placement [None]

NARRATIVE: CASE EVENT DATE: 201706
